FAERS Safety Report 17075501 (Version 3)
Quarter: 2020Q1

REPORT INFORMATION
  Report Type: Spontaneous
  Country: US (occurrence: US)
  Receive Date: 20191126
  Receipt Date: 20200108
  Transmission Date: 20200409
  Serious: Yes (Other)
  Sender: FDA-Public Use
  Company Number: US-PFIZER INC-2019505939

PATIENT
  Age: 80 Year
  Sex: Female

DRUGS (3)
  1. HEPARIN SODIUM. [Suspect]
     Active Substance: HEPARIN SODIUM
     Indication: ANGIOGRAM PERIPHERAL
     Dosage: 4000 IU (70 IU/KG), UNK (COLICIN FACTOR)
     Route: 040
     Dates: start: 20191114
  2. HEPARIN SODIUM. [Suspect]
     Active Substance: HEPARIN SODIUM
     Indication: ATHERECTOMY
  3. HEPARIN SODIUM. [Suspect]
     Active Substance: HEPARIN SODIUM
     Indication: STENT PLACEMENT

REACTIONS (1)
  - Anticoagulation drug level below therapeutic [Recovered/Resolved]

NARRATIVE: CASE EVENT DATE: 20191114
